FAERS Safety Report 5552639-8 (Version None)
Quarter: 2007Q4

REPORT INFORMATION
  Report Type: 
  Country: None (occurrence: None)
  Receive Date: 20071203
  Receipt Date: 20071124
  Transmission Date: 20080405
  Serious: Yes (Other)
  Sender: FDA-Public Use
  Company Number: CHPA2007US12589

PATIENT
  Age: 64 Year
  Sex: Male

DRUGS (4)
  1. EXCEDRIN EXTRA STRENGTH (NCH)(CAFFEINE CITRATE, ACETYLSALICYLIC ACID, [Suspect]
     Indication: TOOTHACHE
     Dosage: 2 DF, ONCE/SINGLE, ORAL
     Route: 048
     Dates: start: 20071124, end: 20071124
  2. ANTIBIOTICS (NO INGREDIENTS/SUBSTANCES) [Suspect]
     Indication: TOOTH ABSCESS
     Dosage: INTRAVENOUS
     Route: 042
  3. CLINDAMYCIN (CLINDAMYCIN) [Suspect]
     Indication: TOOTH ABSCESS
     Dosage: 150 MG, QID
  4. ACETAMINOPHEN [Concomitant]

REACTIONS (5)
  - LIP SWELLING [None]
  - LOCAL SWELLING [None]
  - OEDEMA PERIPHERAL [None]
  - SWOLLEN TONGUE [None]
  - TOOTH ABSCESS [None]
